FAERS Safety Report 4775056-7 (Version None)
Quarter: 2005Q3

REPORT INFORMATION
  Report Type: 
  Country: None (occurrence: None)
  Receive Date: 20050920
  Receipt Date: 20050915
  Transmission Date: 20060218
  Serious: Yes (Hospitalization)
  Sender: FDA-Public Use
  Company Number: 2005107013

PATIENT
  Age: 38 Year
  Sex: Female
  Weight: 54 kg

DRUGS (2)
  1. RELPAX [Suspect]
     Indication: HEADACHE
     Dosage: 40 MG (40 MG, INITIAL (25JUL2005): ORAL
     Route: 048
     Dates: start: 20050706, end: 20050707
  2. ACETAMINOPHEN [Concomitant]

REACTIONS (9)
  - CONVERSION DISORDER [None]
  - DRUG INTOLERANCE [None]
  - DYSPNOEA [None]
  - HYPERTENSION [None]
  - INSOMNIA [None]
  - PALPITATIONS [None]
  - TACHYCARDIA [None]
  - VERTIGO [None]
  - WEIGHT DECREASED [None]
